FAERS Safety Report 8162841-7 (Version None)
Quarter: 2012Q1

REPORT INFORMATION
  Report Type: 
  Country: None (occurrence: None)
  Receive Date: 20120221
  Receipt Date: 20120208
  Transmission Date: 20120608
  Serious: Yes (Hospitalization)
  Sender: FDA-Public Use
  Company Number: 20120070

PATIENT
  Age: 66 Year
  Sex: Female

DRUGS (11)
  1. THYROID TAB [Concomitant]
  2. ASCORBIC ACID [Concomitant]
  3. PRASTERONE [Concomitant]
  4. VITAMIN B COMPLEX CAP [Concomitant]
  5. MINOCYCLINE HCL [Concomitant]
  6. CYANOCOBALAMIN [Concomitant]
  7. STERILE WATER FOR INJECTION [Concomitant]
  8. TRACE METAL ADDITIVE IN NACL [Suspect]
     Indication: FATIGUE
     Dosage: 1 ML, OVER 55 MINUTES
     Dates: start: 20120207, end: 20120207
  9. CALCIUM GLUCONATE [Suspect]
     Indication: FATIGUE
     Dosage: 4 ML OVER 55 MINUTES
     Dates: start: 20120207, end: 20120207
  10. ADVAIR DISKUS 100/50 [Concomitant]
  11. NEXIUM [Concomitant]

REACTIONS (10)
  - TACHYCARDIA [None]
  - WHITE BLOOD CELL COUNT INCREASED [None]
  - NAUSEA [None]
  - PYREXIA [None]
  - DIZZINESS [None]
  - OFF LABEL USE [None]
  - FEELING ABNORMAL [None]
  - PALLOR [None]
  - CHILLS [None]
  - FATIGUE [None]
